FAERS Safety Report 6233917-6 (Version None)
Quarter: 2009Q2

REPORT INFORMATION
  Report Type: 
  Country: None (occurrence: None)
  Receive Date: 20090618
  Receipt Date: 20090605
  Transmission Date: 20091009
  Serious: Yes (Other)
  Sender: FDA-Public Use
  Company Number: PHHY2009IE23078

PATIENT
  Sex: Female

DRUGS (3)
  1. CLOZARIL [Suspect]
     Dosage: 675 MG, UNK
     Route: 048
  2. VALPROATE SODIUM [Concomitant]
  3. LORAZEPAM [Concomitant]

REACTIONS (2)
  - ANXIETY [None]
  - EMOTIONAL DISTRESS [None]
